FAERS Safety Report 12179540 (Version 1)
Quarter: 2016Q1

REPORT INFORMATION
  Report Type: Spontaneous
  Country: US (occurrence: None)
  Receive Date: 20160314
  Receipt Date: 20160314
  Transmission Date: 20160526
  Serious: Yes (Other)
  Sender: FDA-Public Use
  Company Number: None

PATIENT
  Age: 16 Year
  Sex: Female
  Weight: 0 kg

DRUGS (1)
  1. COPAXONE [Suspect]
     Active Substance: GLATIRAMER ACETATE
     Dosage: SUBCUTANEOUS 057 40MG INJECTABLE TIW
     Route: 058

REACTIONS (2)
  - Urticaria [None]
  - Face oedema [None]

NARRATIVE: CASE EVENT DATE: 20160311
